FAERS Safety Report 16999476 (Version 4)
Quarter: 2020Q1

REPORT INFORMATION
  Report Type: Report from Study
  Country: PL (occurrence: PL)
  Receive Date: 20191105
  Receipt Date: 20200323
  Transmission Date: 20200409
  Serious: Yes (Other)
  Sender: FDA-Public Use
  Company Number: PL-CELLTRION INC.-2019PL025971

PATIENT

DRUGS (27)
  1. REMSIMA [Suspect]
     Active Substance: INFLIXIMAB
     Dosage: 250 MG
     Dates: start: 20170607, end: 20170607
  2. REMSIMA [Suspect]
     Active Substance: INFLIXIMAB
     Dosage: 250 MG
     Dates: start: 20181123, end: 20181123
  3. REMSIMA [Suspect]
     Active Substance: INFLIXIMAB
     Dosage: 200 MG
     Dates: start: 20190312, end: 20190312
  4. REMSIMA [Suspect]
     Active Substance: INFLIXIMAB
     Dosage: 200 MG
     Dates: start: 20160517, end: 20160517
  5. REMSIMA [Suspect]
     Active Substance: INFLIXIMAB
     Dosage: 250 MG
     Dates: start: 20170427, end: 20170427
  6. VIROLEX [ACICLOVIR] [Concomitant]
     Indication: ORAL HERPES
     Dosage: 1 CM, PRN
     Route: 061
     Dates: start: 20180803, end: 20190507
  7. REMSIMA [Suspect]
     Active Substance: INFLIXIMAB
     Dosage: 200 MG
     Dates: start: 20160614, end: 20160614
  8. REMSIMA [Suspect]
     Active Substance: INFLIXIMAB
     Dosage: 200 MG
     Dates: start: 20160823, end: 20160823
  9. CALCIUM CARBONATE. [Concomitant]
     Active Substance: CALCIUM CARBONATE
     Indication: BONE DENSITY DECREASED
     Dosage: 1000 MILLIGRAM, BID
     Route: 048
     Dates: start: 20180224
  10. REMSIMA [Suspect]
     Active Substance: INFLIXIMAB
     Dosage: 200 MG
     Dates: start: 20161222, end: 20161222
  11. REMSIMA [Suspect]
     Active Substance: INFLIXIMAB
     Dosage: 200 MG
     Dates: start: 20190122, end: 20190122
  12. DEVIKAP [Concomitant]
     Indication: SUPPLEMENTATION THERAPY
     Dosage: 4 DROP ONCE A DAY
     Route: 048
     Dates: start: 20171025
  13. REMSIMA [Suspect]
     Active Substance: INFLIXIMAB
     Dosage: 200 MG
     Dates: start: 20160419, end: 20160419
  14. REMSIMA [Suspect]
     Active Substance: INFLIXIMAB
     Dosage: 200 MG
     Dates: start: 20161017, end: 20161017
  15. REMSIMA [Suspect]
     Active Substance: INFLIXIMAB
     Dosage: 200 MG
     Dates: start: 20171023, end: 20171023
  16. REMSIMA [Suspect]
     Active Substance: INFLIXIMAB
     Dosage: 200 MG
     Dates: start: 20180409, end: 20180409
  17. REMSIMA [Suspect]
     Active Substance: INFLIXIMAB
     Dosage: 220 MG
     Dates: start: 20180803, end: 20180803
  18. REMSIMA [Suspect]
     Active Substance: INFLIXIMAB
     Indication: CROHN^S DISEASE
     Dosage: 250 MG
     Dates: start: 20160322, end: 20160322
  19. REMSIMA [Suspect]
     Active Substance: INFLIXIMAB
     Dosage: 200 MG
     Dates: start: 20170905, end: 20170905
  20. REMSIMA [Suspect]
     Active Substance: INFLIXIMAB
     Dosage: 200 MG
     Dates: start: 20180202, end: 20180202
  21. REMSIMA [Suspect]
     Active Substance: INFLIXIMAB
     Dosage: 220 MG
     Dates: start: 20180928, end: 20180928
  22. MESALAMINE. [Concomitant]
     Active Substance: MESALAMINE
     Indication: CROHN^S DISEASE
     Dosage: 1 GRAM ONCE A DAY
     Route: 048
     Dates: start: 20130818
  23. REMSIMA [Suspect]
     Active Substance: INFLIXIMAB
     Dosage: 200 MG
     Dates: start: 20170313, end: 20170313
  24. REMSIMA [Suspect]
     Active Substance: INFLIXIMAB
     Dosage: 200 MG
     Dates: start: 20171211, end: 20171211
  25. REMSIMA [Suspect]
     Active Substance: INFLIXIMAB
     Dosage: 200 MG
     Dates: start: 20180608, end: 20180608
  26. REMSIMA [Suspect]
     Active Substance: INFLIXIMAB
     Dosage: 250 MG
     Dates: start: 20190507, end: 20190507
  27. CENTRUM JUNIOR [ASCORBIC ACID;BIOTIN;CALCIUM;CALCIUM CARBONATE;CALCIUM [Concomitant]
     Indication: HYPOVITAMINOSIS
     Dosage: 1 CAPSULE ONCE A DAY
     Route: 048

REACTIONS (1)
  - Seborrhoeic dermatitis [Not Recovered/Not Resolved]

NARRATIVE: CASE EVENT DATE: 20190408
